FAERS Safety Report 10862838 (Version 1)
Quarter: 2015Q1

REPORT INFORMATION
  Report Type: Spontaneous
  Country: US (occurrence: None)
  Receive Date: 20150219
  Receipt Date: 20150219
  Transmission Date: 20150721
  Serious: Yes (Hospitalization)
  Sender: FDA-Public Use
  Company Number: US-ZYDUS-006587

PATIENT

DRUGS (1)
  1. ACICLOVIR (ACICLOVIR) [Suspect]
     Active Substance: ACYCLOVIR
     Indication: VIRAL INFECTION

REACTIONS (1)
  - Nephropathy toxic [None]
